FAERS Safety Report 19113838 (Version 1)
Quarter: 2021Q2

REPORT INFORMATION
  Report Type: Spontaneous
  Country: US (occurrence: US)
  Receive Date: 20210408
  Receipt Date: 20210408
  Transmission Date: 20210717
  Serious: Yes (Death)
  Sender: FDA-Public Use
  Company Number: US-ELI_LILLY_AND_COMPANY-US202104002230

PATIENT
  Age: 37 Year
  Sex: Female

DRUGS (11)
  1. DIGOXIN. [Concomitant]
     Active Substance: DIGOXIN
  2. VITAMIN D3 [Concomitant]
     Active Substance: CHOLECALCIFEROL
  3. COUMADIN [Concomitant]
     Active Substance: WARFARIN SODIUM
  4. AMBRISENTAN [Suspect]
     Active Substance: AMBRISENTAN
     Indication: PULMONARY ARTERIAL HYPERTENSION
     Dosage: 10 MG, DAILY
     Route: 065
     Dates: start: 20130801
  5. VELETRI [Concomitant]
     Active Substance: EPOPROSTENOL
  6. CLARITINE [Concomitant]
     Active Substance: LORATADINE
  7. FERROUS FUMARA [Concomitant]
  8. BENADRYL ALLERGY [DIPHENHYDRAMINE HYDROCHLORI [Concomitant]
  9. CALCIUM [Concomitant]
     Active Substance: CALCIUM
  10. PROBIOTICA [Concomitant]
     Active Substance: PROBIOTICS NOS
  11. ADCIRCA [Suspect]
     Active Substance: TADALAFIL
     Indication: PULMONARY ARTERIAL HYPERTENSION
     Dosage: 40 MG, DAILY
     Route: 065
     Dates: start: 20150316

REACTIONS (1)
  - Death [Fatal]

NARRATIVE: CASE EVENT DATE: 20210401
